FAERS Safety Report 24034466 (Version 1)
Quarter: 2024Q3

REPORT INFORMATION
  Report Type: Spontaneous
  Country: US (occurrence: US)
  Receive Date: 20240701
  Receipt Date: 20240701
  Transmission Date: 20241016
  Serious: Yes (Hospitalization, Other)
  Sender: INSUD PHARMA
  Company Number: US-INSUD PHARMA-2406US05071

PATIENT

DRUGS (1)
  1. TESTOSTERONE [Suspect]
     Active Substance: TESTOSTERONE
     Indication: Muscle building therapy
     Dosage: UNK
     Route: 065

REACTIONS (8)
  - Acute respiratory failure [Recovering/Resolving]
  - Acute lung injury [Recovered/Resolved]
  - Pulmonary eosinophilia [Recovered/Resolved]
  - Drug abuse [Recovered/Resolved]
  - Dyspnoea [Recovered/Resolved]
  - Cough [Recovered/Resolved]
  - Hypoxia [Recovered/Resolved]
  - Respiratory distress [Recovered/Resolved]
